FAERS Safety Report 7662931-9 (Version None)
Quarter: 2011Q3

REPORT INFORMATION
  Report Type: 
  Country: None (occurrence: None)
  Receive Date: 20110805
  Receipt Date: 20100914
  Transmission Date: 20111222
  Serious: No
  Sender: FDA-Public Use
  Company Number: US-ABBOTT-10P-163-0671763-00

PATIENT
  Sex: Male
  Weight: 68.1 kg

DRUGS (3)
  1. KAPIDEX [Concomitant]
     Indication: PROSTATE CANCER
  2. NIASPAN [Suspect]
     Indication: BLOOD CHOLESTEROL INCREASED
     Dosage: EVERY NIGHT
     Dates: start: 20100720, end: 20100907
  3. VANTEX [Concomitant]
     Indication: PROSTATE CANCER

REACTIONS (1)
  - MUSCULAR WEAKNESS [None]
